FAERS Safety Report 13495298 (Version 1)
Quarter: 2017Q2

REPORT INFORMATION
  Report Type: Spontaneous
  Country: US (occurrence: US)
  Receive Date: 20170427
  Receipt Date: 20170427
  Transmission Date: 20170830
  Serious: Yes (Other)
  Sender: FDA-Public Use
  Company Number: None

PATIENT
  Age: 53 Year
  Sex: Female
  Weight: 75 kg

DRUGS (1)
  1. DARATUMUMAB [Suspect]
     Active Substance: DARATUMUMAB
     Indication: PLASMA CELL MYELOMA
     Dosage: ?          OTHER FREQUENCY:WEEKLY;?
     Route: 042
     Dates: start: 20170427, end: 20170427

REACTIONS (7)
  - Oropharyngeal pain [None]
  - Dyspnoea [None]
  - Nausea [None]
  - Transfusion reaction [None]
  - Vomiting [None]
  - Pain [None]
  - Wheezing [None]

NARRATIVE: CASE EVENT DATE: 20170427
